FAERS Safety Report 5024937-8 (Version None)
Quarter: 2006Q2

REPORT INFORMATION
  Report Type: 
  Country: None (occurrence: None)
  Receive Date: 20060607
  Receipt Date: 20060530
  Transmission Date: 20061013
  Serious: Yes (Death, Hospitalization)
  Sender: FDA-Public Use
  Company Number: 225771

PATIENT
  Age: 50 Year
  Sex: Male

DRUGS (4)
  1. ACTIVASE [Suspect]
     Indication: ISCHAEMIC STROKE
     Dosage: SEE IMAGE
     Dates: start: 20060313, end: 20060313
  2. PRETERAX (INDAPAMIDE, PERINDOPRIL ERBUMINE) [Concomitant]
  3. KARDEGIC (ASPIRIN DL-LYSINE) [Concomitant]
  4. SOLU-MEDROL [Concomitant]

REACTIONS (2)
  - ANAPHYLACTIC SHOCK [None]
  - CARDIAC ARREST [None]
